FAERS Safety Report 24371290 (Version 1)
Quarter: 2024Q3

REPORT INFORMATION
  Report Type: Spontaneous
  Country: FR (occurrence: FR)
  Receive Date: 20240927
  Receipt Date: 20240927
  Transmission Date: 20241016
  Serious: Yes (Other)
  Sender: MYLAN
  Company Number: FR-MYLANLABS-2024M1086211

PATIENT
  Sex: Female

DRUGS (3)
  1. METHOTREXATE [Suspect]
     Active Substance: METHOTREXATE
     Indication: Cardiofaciocutaneous syndrome
     Dosage: 20 MILLIGRAM, QW
     Route: 065
  2. ACITRETIN [Suspect]
     Active Substance: ACITRETIN
     Indication: Cardiofaciocutaneous syndrome
     Dosage: 0.5 MILLIGRAM/KILOGRAM
     Route: 065
  3. USTEKINUMAB [Suspect]
     Active Substance: USTEKINUMAB
     Indication: Cardiofaciocutaneous syndrome
     Dosage: 45 MILLIGRAM (EVERY 12 WEEKS)
     Route: 058

REACTIONS (2)
  - Treatment failure [Unknown]
  - Off label use [Unknown]
